FAERS Safety Report 8296461-0 (Version None)
Quarter: 2012Q2

REPORT INFORMATION
  Report Type: 
  Country: None (occurrence: None)
  Receive Date: 20120418
  Receipt Date: 20120413
  Transmission Date: 20120825
  Serious: Yes (Other)
  Sender: FDA-Public Use
  Company Number: US-PFIZER INC-2012066131

PATIENT
  Sex: Male

DRUGS (1)
  1. LIPITOR [Suspect]
     Dosage: UNK

REACTIONS (5)
  - MUSCLE DISORDER [None]
  - HYPOTONIA [None]
  - ASTHENIA [None]
  - BEDRIDDEN [None]
  - WEIGHT DECREASED [None]
